FAERS Safety Report 5380905-8 (Version None)
Quarter: 2007Q3

REPORT INFORMATION
  Report Type: 
  Country: None (occurrence: None)
  Receive Date: 20070702
  Receipt Date: 20060731
  Transmission Date: 20080115
  Serious: Yes (Hospitalization)
  Sender: FDA-Public Use
  Company Number: SPV1-2006-00371

PATIENT
  Age: 14 Year
  Sex: Male

DRUGS (2)
  1. PENTASA [Suspect]
     Indication: GASTROENTERITIS
     Dosage: 3 G DAILY, ORAL
     Route: 048
     Dates: start: 20050905, end: 20051010
  2. CALCIUM CARBONATE (CALCIUM CARBONATE) [Concomitant]

REACTIONS (1)
  - MYOCARDITIS [None]
